FAERS Safety Report 5978042-4 (Version None)
Quarter: 2008Q4

REPORT INFORMATION
  Report Type: 
  Country: None (occurrence: None)
  Receive Date: 20081126
  Receipt Date: 20081112
  Transmission Date: 20090506
  Serious: Yes (Other)
  Sender: FDA-Public Use
  Company Number: URSO-2008-143

PATIENT
  Sex: Male

DRUGS (3)
  1. DELURSAN (URSODEOXYCHOLIC ACID) [Suspect]
     Route: 048
     Dates: start: 20081015
  2. PREVISCAN(FLUIDIONE) [Concomitant]
  3. COUMADIN [Concomitant]

REACTIONS (1)
  - INTERNATIONAL NORMALISED RATIO DECREASED [None]
